FAERS Safety Report 6765433-7 (Version None)
Quarter: 2010Q2

REPORT INFORMATION
  Report Type: 
  Country: None (occurrence: None)
  Receive Date: 20100611
  Receipt Date: 20100602
  Transmission Date: 20101027
  Serious: Yes (Hospitalization)
  Sender: FDA-Public Use
  Company Number: DK-JNJFOC-20100600806

PATIENT
  Age: 27 Year
  Sex: Male
  Weight: 80 kg

DRUGS (26)
  1. HALOPERIDOL [Suspect]
     Indication: AGITATION
     Dosage: 2 MG+5 MG
     Route: 030
  2. HALOPERIDOL [Suspect]
     Indication: ACUTE PSYCHOSIS
     Dosage: 2 MG+5 MG
     Route: 030
  3. ZUCLOPENTHIXOL [Suspect]
     Indication: AGITATION
     Route: 048
  4. ZUCLOPENTHIXOL [Suspect]
     Route: 048
  5. ZUCLOPENTHIXOL [Suspect]
     Indication: ACUTE PSYCHOSIS
     Route: 048
  6. ZUCLOPENTHIXOL [Suspect]
     Route: 048
  7. CHLORPROTHIXENE [Suspect]
     Indication: AGITATION
     Route: 048
  8. CHLORPROTHIXENE [Suspect]
     Dosage: 25-50 MG
     Route: 048
  9. CHLORPROTHIXENE [Suspect]
     Indication: ACUTE PSYCHOSIS
     Route: 048
  10. CHLORPROTHIXENE [Suspect]
     Dosage: 25-50 MG
     Route: 048
  11. BENZODIAZEPINE NOS [Suspect]
     Indication: AGITATION
     Route: 030
  12. BENZODIAZEPINE NOS [Suspect]
     Indication: ACUTE PSYCHOSIS
     Route: 030
  13. ZUCLOPENTHIXOL [Suspect]
     Route: 030
  14. ZUCLOPENTHIXOL [Suspect]
     Dosage: 5-10 MG
     Route: 030
  15. ZUCLOPENTHIXOL [Suspect]
     Route: 030
  16. ZUCLOPENTHIXOL [Suspect]
     Dosage: 5-10 MG
     Route: 030
  17. OXAZEPAM [Suspect]
     Indication: AGITATION
     Route: 048
  18. OXAZEPAM [Suspect]
     Indication: ACUTE PSYCHOSIS
     Route: 048
  19. BENZHEXOL [Suspect]
     Indication: AGITATION
     Route: 048
  20. BENZHEXOL [Suspect]
     Indication: ACUTE PSYCHOSIS
     Route: 048
  21. BIPERIDEN HYDROCHLORIDE TAB [Suspect]
     Indication: AGITATION
     Route: 048
  22. BIPERIDEN HYDROCHLORIDE TAB [Suspect]
     Indication: ACUTE PSYCHOSIS
     Route: 048
  23. LEVOPROMAZIN [Suspect]
     Indication: AGITATION
     Dosage: 50-100 MG
     Route: 048
  24. LEVOPROMAZIN [Suspect]
     Indication: ACUTE PSYCHOSIS
     Dosage: 50-100 MG
     Route: 048
  25. CLONAZEPAM [Suspect]
     Indication: AGITATION
     Route: 030
  26. CLONAZEPAM [Suspect]
     Indication: ACUTE PSYCHOSIS
     Route: 030

REACTIONS (9)
  - AGITATION [None]
  - ANXIETY [None]
  - CHEST PAIN [None]
  - DEEP VEIN THROMBOSIS [None]
  - FEAR [None]
  - HYPERVENTILATION [None]
  - HYPOPHAGIA [None]
  - PULMONARY EMBOLISM [None]
  - SYNCOPE [None]
